FAERS Safety Report 17303589 (Version 1)
Quarter: 2020Q1

REPORT INFORMATION
  Report Type: Report from Study
  Country: US (occurrence: US)
  Receive Date: 20200122
  Receipt Date: 20200122
  Transmission Date: 20200409
  Serious: Yes (Hospitalization)
  Sender: FDA-Public Use
  Company Number: US-ACTELION-A-US2019-189400

PATIENT
  Age: 60 Year
  Sex: Female

DRUGS (4)
  1. UPTRAVI [Suspect]
     Active Substance: SELEXIPAG
     Indication: PULMONARY ARTERIAL HYPERTENSION
     Dosage: 400 MCG, BID
     Route: 048
     Dates: start: 20190323
  2. OPSUMIT [Suspect]
     Active Substance: MACITENTAN
     Indication: PULMONARY ARTERIAL HYPERTENSION
     Dosage: 10 MG, QD
     Route: 048
     Dates: start: 20160527
  3. SILDENAFIL. [Concomitant]
     Active Substance: SILDENAFIL
  4. UPTRAVI [Suspect]
     Active Substance: SELEXIPAG
     Dosage: 600 MCG, BID
     Route: 048

REACTIONS (16)
  - Myalgia [Unknown]
  - Headache [Unknown]
  - Pain in extremity [Unknown]
  - Abdominal pain [Unknown]
  - Acute sinusitis [Unknown]
  - Sleep apnoea syndrome [Unknown]
  - Dyspnoea [Unknown]
  - Brain natriuretic peptide increased [Not Recovered/Not Resolved]
  - Pain in jaw [Unknown]
  - Chronic obstructive pulmonary disease [Unknown]
  - Fatigue [Unknown]
  - Diarrhoea [Unknown]
  - Hospitalisation [Unknown]
  - Pulmonary arterial hypertension [Unknown]
  - Influenza [Unknown]
  - Arthralgia [Unknown]

NARRATIVE: CASE EVENT DATE: 20190417
